FAERS Safety Report 25525473 (Version 1)
Quarter: 2025Q3

REPORT INFORMATION
  Report Type: Spontaneous
  Country: US (occurrence: None)
  Receive Date: 20250705
  Receipt Date: 20250705
  Transmission Date: 20251021
  Serious: Yes (Hospitalization)
  Sender: FDA-CTU
  Company Number: None

PATIENT
  Sex: Female

DRUGS (2)
  1. OPSUMIT [Suspect]
     Active Substance: MACITENTAN
     Indication: Pulmonary arterial hypertension
     Dosage: 10 MG DAILY ORAL
     Route: 048
     Dates: start: 20250630
  2. REMODULIN [Suspect]
     Active Substance: TREPROSTINIL

REACTIONS (4)
  - Constipation [None]
  - Faeces discoloured [None]
  - Intestinal mucosal tear [None]
  - Application site pruritus [None]
